FAERS Safety Report 5343681-0 (Version None)
Quarter: 2007Q2

REPORT INFORMATION
  Report Type: 
  Country: None (occurrence: None)
  Receive Date: 20070604
  Receipt Date: 20070528
  Transmission Date: 20071010
  Serious: Yes (Other)
  Sender: FDA-Public Use
  Company Number: IT-JNJFOC-20070506477

PATIENT
  Age: 69 Year
  Sex: Female

DRUGS (2)
  1. CAELYX [Suspect]
     Indication: BREAST CANCER
     Route: 042
  2. CYCLOPHOSPHAMIDE [Concomitant]
     Indication: BREAST CANCER
     Route: 042

REACTIONS (3)
  - CHOKING SENSATION [None]
  - FLUSHING [None]
  - TACHYCARDIA [None]
